FAERS Safety Report 8165847-7 (Version None)
Quarter: 2012Q1

REPORT INFORMATION
  Report Type: 
  Country: None (occurrence: None)
  Receive Date: 20120223
  Receipt Date: 20120223
  Transmission Date: 20120608
  Serious: No
  Sender: FDA-Public Use
  Company Number: None

PATIENT
  Age: 34 Year
  Sex: Male

DRUGS (1)
  1. PROCHLORPERAZINE [Suspect]
     Indication: PAIN
     Dates: end: 20100627

REACTIONS (1)
  - DYSTONIA [None]
